FAERS Safety Report 4449534-4 (Version None)
Quarter: 2004Q3

REPORT INFORMATION
  Report Type: 
  Country: None (occurrence: None)
  Receive Date: 20040914
  Receipt Date: 20040907
  Transmission Date: 20050211
  Serious: Yes (Hospitalization)
  Sender: FDA-Public Use
  Company Number: IL-BRISTOL-MYERS SQUIBB COMPANY-12693941

PATIENT
  Age: 77 Year
  Sex: Male
  Weight: 68 kg

DRUGS (2)
  1. CISPLATIN [Suspect]
     Indication: BLADDER CANCER
     Dosage: START DATE:  15-NOV-2002.
     Dates: start: 20030207, end: 20030207
  2. GEMZAR [Suspect]
     Indication: BLADDER CANCER
     Dosage: START DATE:  14-NOV-2002.
     Dates: start: 20030220, end: 20030220

REACTIONS (2)
  - EPISTAXIS [None]
  - THROMBOCYTOPENIA [None]
